FAERS Safety Report 7825269-2 (Version None)
Quarter: 2011Q4

REPORT INFORMATION
  Report Type: 
  Country: None (occurrence: None)
  Receive Date: 20111019
  Receipt Date: 20111014
  Transmission Date: 20120403
  Serious: Yes (Hospitalization)
  Sender: FDA-Public Use
  Company Number: US-GLAXOSMITHKLINE-A0949141A

PATIENT
  Sex: Female

DRUGS (2)
  1. KLONOPIN [Suspect]
     Route: 065
  2. LAMICTAL [Suspect]
     Indication: PRODUCT USED FOR UNKNOWN INDICATION
     Dosage: 150MG SEE DOSAGE TEXT
     Route: 048

REACTIONS (5)
  - LOSS OF CONSCIOUSNESS [None]
  - TREATMENT NONCOMPLIANCE [None]
  - OVERDOSE [None]
  - RHABDOMYOLYSIS [None]
  - DISORIENTATION [None]
